FAERS Safety Report 16864790 (Version 1)
Quarter: 2019Q3

REPORT INFORMATION
  Report Type: Report from Study
  Country: US (occurrence: US)
  Receive Date: 20190929
  Receipt Date: 20190929
  Transmission Date: 20191005
  Serious: Yes (Hospitalization)
  Sender: FDA-Public Use
  Company Number: PHHO2019US003852

PATIENT
  Age: 23 Month
  Sex: Male
  Weight: 12.8 kg

DRUGS (10)
  1. FLUDARABINE [Suspect]
     Active Substance: FLUDARABINE PHOSPHATE
     Indication: CHEMOTHERAPY
     Dosage: 30 MG/M2 X 4 DAYS
     Route: 065
     Dates: start: 20190318, end: 20190321
  2. VORICONAZOLE. [Concomitant]
     Active Substance: VORICONAZOLE
     Indication: PRODUCT USED FOR UNKNOWN INDICATION
     Dosage: 100 MG, BID
     Route: 048
     Dates: start: 20190329
  3. CYCLOPHOSPHAMIDE. [Suspect]
     Active Substance: CYCLOPHOSPHAMIDE
     Indication: CHEMOTHERAPY
     Dosage: 500 MG/M2 X 2 DAYS, UNK
     Route: 065
     Dates: start: 20190318, end: 20190319
  4. CTL119 [Suspect]
     Active Substance: INVESTIGATIONAL PRODUCT
     Dosage: 5E+06 HUCART19 CELLS/KG, 6.35E+07 HUCART19 CELLS AND 4.28E+08 TOTAL CELLS
     Route: 042
     Dates: start: 20190916, end: 20190916
  5. VALGANCICLOVIR. [Concomitant]
     Active Substance: VALGANCICLOVIR
     Indication: PRODUCT USED FOR UNKNOWN INDICATION
     Dosage: 450 MG, BID
     Route: 048
     Dates: start: 20190329
  6. CYCLOPHOSPHAMIDE. [Suspect]
     Active Substance: CYCLOPHOSPHAMIDE
     Dosage: 500 MG/M2 X 2 DAYS, UNK
     Route: 065
     Dates: start: 20190910, end: 20190911
  7. FLUDARABINE [Suspect]
     Active Substance: FLUDARABINE PHOSPHATE
     Dosage: 30 MG/M2 X 4 DAYS
     Route: 065
     Dates: start: 20190910, end: 20190913
  8. IMMUNOGLOBULIN (IMMUNOGLOBULIN HUMAN NORMAL) [Concomitant]
     Active Substance: HUMAN IMMUNOGLOBULIN G
     Indication: PRODUCT USED FOR UNKNOWN INDICATION
     Dosage: 6 G 10%
     Route: 042
     Dates: start: 20190306
  9. CTL119 [Suspect]
     Active Substance: INVESTIGATIONAL PRODUCT
     Indication: ACUTE LYMPHOCYTIC LEUKAEMIA
     Dosage: 5E+06 HUCART19 CELLS/KG 6.35E+07 HUCART19 CELLS AND 4.28E+08 TOTAL CELLS ONCE
     Route: 042
     Dates: start: 20190326, end: 20190326
  10. COTRIMOXAZOLE [Concomitant]
     Active Substance: SULFAMETHOXAZOLE\TRIMETHOPRIM
     Indication: PRODUCT USED FOR UNKNOWN INDICATION
     Dosage: 30.4 MG, BID
     Route: 048
     Dates: start: 20190306

REACTIONS (2)
  - Febrile neutropenia [Recovered/Resolved]
  - Cytokine release syndrome [Recovered/Resolved]

NARRATIVE: CASE EVENT DATE: 20190401
